FAERS Safety Report 5420875-7 (Version None)
Quarter: 2007Q3

REPORT INFORMATION
  Report Type: 
  Country: None (occurrence: None)
  Receive Date: 20070817
  Receipt Date: 20070813
  Transmission Date: 20080115
  Serious: Yes (Other)
  Sender: FDA-Public Use
  Company Number: 2007-GWUS-0400

PATIENT
  Sex: Male

DRUGS (2)
  1. ALDARA [Suspect]
     Indication: BASAL CELL CARCINOMA
     Dosage: TOPICAL
     Route: 061
  2. TRIAMTERENE/HYDROCHLOROTHIAZIDE (MAXZIDE) [Concomitant]

REACTIONS (1)
  - IDIOPATHIC THROMBOCYTOPENIC PURPURA [None]
